FAERS Safety Report 4480876-2 (Version None)
Quarter: 2004Q4

REPORT INFORMATION
  Report Type: 
  Country: None (occurrence: None)
  Receive Date: 20041019
  Receipt Date: 20041007
  Transmission Date: 20050328
  Serious: No
  Sender: FDA-Public Use
  Company Number: US-2004-029374

PATIENT
  Sex: Female

DRUGS (1)
  1. CLIMARA [Suspect]
     Dosage: 37.5 UG/DAY, CONT, TRANSDERMAL
     Route: 062

REACTIONS (1)
  - NO ADVERSE DRUG EFFECT [None]
